FAERS Safety Report 7069374-X (Version None)
Quarter: 2010Q4

REPORT INFORMATION
  Report Type: 
  Country: None (occurrence: None)
  Receive Date: 20101028
  Receipt Date: 20101022
  Transmission Date: 20110411
  Serious: Yes (Hospitalization)
  Sender: FDA-Public Use
  Company Number: US-GILEAD-2010-0032859

PATIENT
  Sex: Male
  Weight: 90.8 kg

DRUGS (12)
  1. LETAIRIS [Suspect]
     Indication: PULMONARY ARTERIAL HYPERTENSION
     Route: 048
     Dates: start: 20100502
  2. REVATIO [Concomitant]
  3. OXYGEN [Concomitant]
  4. ASPIRIN [Concomitant]
  5. LASIX [Concomitant]
  6. LOPRESSOR [Concomitant]
  7. LIPITOR [Concomitant]
  8. ADVAIR DISKUS 100/50 [Concomitant]
  9. FISH OIL [Concomitant]
  10. MOVE FREE ARTHRITIS [Concomitant]
  11. VITAMIN D [Concomitant]
  12. MULTI-VITAMIN [Concomitant]

REACTIONS (1)
  - PNEUMONIA [None]
